FAERS Safety Report 21663414 (Version 1)
Quarter: 2022Q4

REPORT INFORMATION
  Report Type: Spontaneous
  Country: US (occurrence: None)
  Receive Date: 20221130
  Receipt Date: 20221130
  Transmission Date: 20230113
  Serious: No
  Sender: FDA-Public Use
  Company Number: 2022A365365

PATIENT
  Sex: Female
  Weight: 67.1 kg

DRUGS (1)
  1. FASLODEX [Suspect]
     Active Substance: FULVESTRANT
     Indication: Breast cancer female
     Route: 030
     Dates: start: 2021

REACTIONS (3)
  - Injection site pain [Unknown]
  - Injection site discharge [Unknown]
  - Incorrect dose administered [Unknown]
